FAERS Safety Report 12309118 (Version 1)
Quarter: 2016Q2

REPORT INFORMATION
  Report Type: Spontaneous
  Country: US (occurrence: None)
  Receive Date: 20160426
  Receipt Date: 20160426
  Transmission Date: 20160815
  Serious: Yes (Other)
  Sender: FDA-Public Use
  Company Number: None

PATIENT
  Age: 51 Year
  Sex: Female
  Weight: 113.4 kg

DRUGS (22)
  1. TIZANIDINE. [Concomitant]
     Active Substance: TIZANIDINE
  2. OMEPREZOLE [Concomitant]
     Active Substance: OMEPRAZOLE
  3. AMBIENT [Concomitant]
  4. MAXALT [Concomitant]
     Active Substance: RIZATRIPTAN BENZOATE
  5. KRILL OIL [Concomitant]
     Active Substance: DIETARY SUPPLEMENT
  6. VITAMIN D [Concomitant]
     Active Substance: CHOLECALCIFEROL
  7. ADVAIR HFA [Concomitant]
     Active Substance: FLUTICASONE PROPIONATE\SALMETEROL XINAFOATE
  8. METOCLOPRAMIDE. [Concomitant]
     Active Substance: METOCLOPRAMIDE
  9. LEXAPRO [Concomitant]
     Active Substance: ESCITALOPRAM OXALATE
  10. SINGULAIR [Concomitant]
     Active Substance: MONTELUKAST SODIUM
  11. SUPER B COMPLEX [Concomitant]
     Active Substance: CYANOCOBALAMIN\DEXPANTHENOL\NIACINAMIDE\PYRIDOXINE HYDROCHLORIDE\RIBOFLAVIN 5^-PHOSPHATE SODIUM\THIAMINE HYDROCHLORIDE\VITAMIN B COMPLEX
  12. TOPAMAX [Concomitant]
     Active Substance: TOPIRAMATE
  13. NUVIGIIL [Concomitant]
  14. ZYRTEX [Concomitant]
  15. VISION 360 [Concomitant]
  16. TYSABRI [Concomitant]
     Active Substance: NATALIZUMAB
  17. BACLOFIN [Concomitant]
  18. BOTOX [Suspect]
     Active Substance: ONABOTULINUMTOXINA
     Indication: MIGRAINE
     Dosage: EVERY 12 WEEKS GIVEN INTO/UNDER THE SKIN
     Route: 058
     Dates: start: 20151228
  19. BUPROPION. [Concomitant]
     Active Substance: BUPROPION
  20. VALTREX [Concomitant]
     Active Substance: VALACYCLOVIR HYDROCHLORIDE
  21. VITAMIN D [Concomitant]
     Active Substance: CHOLECALCIFEROL
  22. CLARITIIIN [Concomitant]

REACTIONS (4)
  - Dyspnoea [None]
  - Eyelid oedema [None]
  - Visual acuity reduced [None]
  - Vision blurred [None]

NARRATIVE: CASE EVENT DATE: 20160325
